FAERS Safety Report 16408785 (Version 1)
Quarter: 2019Q2

REPORT INFORMATION
  Report Type: Spontaneous
  Country: DE (occurrence: DE)
  Receive Date: 20190610
  Receipt Date: 20190610
  Transmission Date: 20190711
  Serious: Yes (Death)
  Sender: FDA-Public Use
  Company Number: DE-DRREDDYS-GER/GER/19/0110884

PATIENT
  Age: 60 Year
  Sex: Female

DRUGS (7)
  1. CLOPIDOGREL [Suspect]
     Active Substance: CLOPIDOGREL BISULFATE
     Indication: PERIPHERAL ARTERIAL OCCLUSIVE DISEASE
  2. ASPIRIN. [Suspect]
     Active Substance: ASPIRIN
     Indication: PERIPHERAL ARTERIAL OCCLUSIVE DISEASE
  3. PIRITRAMID [Concomitant]
     Indication: PRODUCT USED FOR UNKNOWN INDICATION
  4. AMPICILLIN/SULBACTAM 2G / 1G [Concomitant]
     Indication: SEPSIS
     Route: 042
     Dates: start: 20150502
  5. HEPARIN [Suspect]
     Active Substance: HEPARIN SODIUM
     Indication: PERIPHERAL ARTERIAL OCCLUSIVE DISEASE
  6. PROTAMIN [Concomitant]
     Active Substance: PROTAMINE
     Indication: PRODUCT USED FOR UNKNOWN INDICATION
  7. ERYTHROCYTENKONZENTRAT [Concomitant]
     Active Substance: HUMAN RED BLOOD CELL
     Indication: HAEMORRHAGE
     Route: 041
     Dates: start: 20190502

REACTIONS (4)
  - Resuscitation [Fatal]
  - Aspiration [Fatal]
  - Cardiovascular disorder [Fatal]
  - Retroperitoneal haemorrhage [Fatal]

NARRATIVE: CASE EVENT DATE: 20190502
